FAERS Safety Report 6159818-X (Version None)
Quarter: 2009Q2

REPORT INFORMATION
  Report Type: 
  Country: None (occurrence: None)
  Receive Date: 20090420
  Receipt Date: 20090409
  Transmission Date: 20091009
  Serious: Yes (Hospitalization)
  Sender: FDA-Public Use
  Company Number: US-BIOGENIDEC-2009BI011150

PATIENT
  Age: 34 Year
  Sex: Female
  Weight: 86 kg

DRUGS (8)
  1. TYSABRI [Suspect]
     Indication: MULTIPLE SCLEROSIS
     Route: 042
     Dates: start: 20080429
  2. LAMOTRIGINE [Concomitant]
     Indication: AFFECTIVE DISORDER
     Route: 048
     Dates: start: 20050101
  3. LITHIUM CARBONATE [Concomitant]
     Indication: AFFECTIVE DISORDER
     Route: 048
     Dates: start: 20080301
  4. FLUOXETINE HCL [Concomitant]
     Indication: AFFECTIVE DISORDER
     Route: 048
     Dates: start: 20090101
  5. TOPIRAMATE [Concomitant]
     Indication: AFFECTIVE DISORDER
     Route: 048
     Dates: start: 20050101
  6. CLONAZEPAM [Concomitant]
     Indication: ANXIETY
     Route: 048
     Dates: start: 20070101
  7. FEXOFENADINE [Concomitant]
     Indication: HYPERSENSITIVITY
     Route: 048
     Dates: start: 20071001
  8. ORTHO-NOVUM [Concomitant]
     Indication: CONTRACEPTION
     Route: 048
     Dates: start: 19920101

REACTIONS (1)
  - BIPOLAR DISORDER [None]
